FAERS Safety Report 14462052 (Version 1)
Quarter: 2018Q1

REPORT INFORMATION
  Report Type: Other
  Country: US (occurrence: US)
  Receive Date: 20180130
  Receipt Date: 20180130
  Transmission Date: 20180509
  Serious: No
  Sender: FDA-Public Use
  Company Number: US-ACORDA-ACO_144314_2017

PATIENT
  Sex: Female
  Weight: 54.42 kg

DRUGS (2)
  1. AMPYRA [Suspect]
     Active Substance: DALFAMPRIDINE
     Indication: GAIT DISTURBANCE
     Dosage: UNK
     Route: 065
  2. TECFIDERA [Suspect]
     Active Substance: DIMETHYL FUMARATE
     Indication: MULTIPLE SCLEROSIS
     Dosage: 240 MG, BID
     Route: 048
     Dates: start: 2015, end: 201801

REACTIONS (8)
  - Cognitive disorder [Unknown]
  - Diarrhoea [Unknown]
  - Drug dose omission [Unknown]
  - Memory impairment [Unknown]
  - Vomiting [Unknown]
  - Gait disturbance [Unknown]
  - Constipation [Unknown]
  - Headache [Unknown]
